FAERS Safety Report 10214302 (Version 3)
Quarter: 2014Q2

REPORT INFORMATION
  Report Type: Spontaneous
  Country: US (occurrence: US)
  Receive Date: 20140603
  Receipt Date: 20140613
  Transmission Date: 20141212
  Serious: No
  Sender: FDA-Public Use
  Company Number: US-PFIZER INC-2014150073

PATIENT
  Age: 60 Year
  Sex: Female
  Weight: 72.6 kg

DRUGS (7)
  1. EFFEXOR XR [Suspect]
     Indication: MOOD SWINGS
     Dosage: 300 MG (TWO 150 MG AT A TIME)
     Route: 048
  2. EFFEXOR XR [Suspect]
     Indication: HOT FLUSH
  3. EFFEXOR XR [Suspect]
     Indication: DEPRESSION
  4. EFFEXOR XR [Suspect]
     Indication: VULVOVAGINAL BURNING SENSATION
  5. VITAMIN D [Concomitant]
     Indication: OSTEOPOROSIS
     Dosage: UNK
  6. COENZYME Q10 [Concomitant]
     Dosage: UNK
  7. VESICARE [Concomitant]
     Indication: BLADDER DISORDER
     Dosage: 10 MG, ONCE A DAY

REACTIONS (8)
  - Blood cholesterol increased [Unknown]
  - Poor quality drug administered [Unknown]
  - Drug ineffective [Unknown]
  - Hot flush [Unknown]
  - Vulvovaginal burning sensation [Unknown]
  - Product quality issue [Unknown]
  - Suspected counterfeit product [Unknown]
  - Drug ineffective [Unknown]
